FAERS Safety Report 23566805 (Version 1)
Quarter: 2024Q1

REPORT INFORMATION
  Report Type: Spontaneous
  Country: US (occurrence: US)
  Receive Date: 20240226
  Receipt Date: 20240226
  Transmission Date: 20240409
  Serious: No
  Sender: FDA-Public Use
  Company Number: US-AMNEAL PHARMACEUTICALS-2023-AMRX-01670

PATIENT
  Sex: Female
  Weight: 54.422 kg

DRUGS (8)
  1. RYTARY [Suspect]
     Active Substance: CARBIDOPA\LEVODOPA
     Indication: Parkinson^s disease
     Dosage: 23.75/95 MG, 4 CAPSULES, TID
     Route: 048
     Dates: start: 202201
  2. RYTARY [Suspect]
     Active Substance: CARBIDOPA\LEVODOPA
     Dosage: 23.75/95 MG, 2 CAPSULES, TID
     Route: 048
  3. RYTARY [Suspect]
     Active Substance: CARBIDOPA\LEVODOPA
     Dosage: 48.75/195 MG, 2 CAPSULES, TID
     Route: 048
     Dates: start: 202209
  4. MIDODRINE [Concomitant]
     Active Substance: MIDODRINE
     Indication: Hypertension
     Dosage: 1 TABLETS, 3 /DAY
  5. AMLODIPINE [Concomitant]
     Active Substance: AMLODIPINE BESYLATE
     Indication: Hypertension
     Dosage: 5 MILLIGRAM, 3 /DAY
  6. CLONAZEPAM [Concomitant]
     Active Substance: CLONAZEPAM
     Indication: Nightmare
     Dosage: 0.5 MILLIGRAM, QD
  7. DULOXETINE [Concomitant]
     Active Substance: DULOXETINE
     Indication: Neuropathy peripheral
     Dosage: 60 MILLIGRAM, QD
  8. TYLENOL [Concomitant]
     Active Substance: ACETAMINOPHEN
     Indication: Arthralgia
     Dosage: 650 MILLIGRAM, 2 /DAY

REACTIONS (7)
  - Vision blurred [Not Recovered/Not Resolved]
  - Decreased appetite [Not Recovered/Not Resolved]
  - Chills [Not Recovered/Not Resolved]
  - Fatigue [Not Recovered/Not Resolved]
  - Dry mouth [Not Recovered/Not Resolved]
  - Dizziness [Not Recovered/Not Resolved]
  - Nausea [Not Recovered/Not Resolved]
